FAERS Safety Report 14995594 (Version 1)
Quarter: 2018Q2

REPORT INFORMATION
  Report Type: Spontaneous
  Country: US (occurrence: US)
  Receive Date: 20180518
  Receipt Date: 20180518
  Transmission Date: 20180711
  Serious: No
  Sender: FDA-Public Use
  Company Number: None

PATIENT
  Age: 64 Year
  Sex: Female

DRUGS (19)
  1. BIOTIN [Concomitant]
     Active Substance: BIOTIN
  2. FLONASE [Concomitant]
     Active Substance: FLUTICASONE PROPIONATE
  3. CALCIUMD3 [Concomitant]
  4. TRAMADOL HCL [Concomitant]
     Active Substance: TRAMADOL HYDROCHLORIDE
  5. VITAMIN B12 [Concomitant]
     Active Substance: CYANOCOBALAMIN
  6. FLUTICASONE. [Concomitant]
     Active Substance: FLUTICASONE
  7. CLARITIN-D NOS [Concomitant]
     Active Substance: LORATADINE\PSEUDOEPHEDRINE SULFATE
  8. VITAMIN D3 [Concomitant]
     Active Substance: CHOLECALCIFEROL
  9. TRAMADOL HCL [Concomitant]
     Active Substance: TRAMADOL HYDROCHLORIDE
  10. FISH OIL [Concomitant]
     Active Substance: FISH OIL
  11. AZITHROMYCIN ANHYDROUS. [Concomitant]
     Active Substance: AZITHROMYCIN ANHYDROUS
  12. GUMMY BITES [Concomitant]
  13. PENICILLIN VK [Concomitant]
     Active Substance: PENICILLIN V POTASSIUM
  14. OCALIVA [Suspect]
     Active Substance: OBETICHOLIC ACID
     Indication: PRIMARY BILIARY CHOLANGITIS
     Route: 048
     Dates: start: 20171011
  15. OMEGA-3 FISH [Concomitant]
  16. POLYMYXIN B/SOL TRIMETHP [Concomitant]
  17. AMOXICILLIN. [Concomitant]
     Active Substance: AMOXICILLIN
  18. WOMENS VITA [Concomitant]
  19. ALREX [Concomitant]
     Active Substance: LOTEPREDNOL ETABONATE

REACTIONS (4)
  - Musculoskeletal stiffness [None]
  - Drug dose omission [None]
  - Constipation [None]
  - Arthralgia [None]
